FAERS Safety Report 10534806 (Version 1)
Quarter: 2014Q4

REPORT INFORMATION
  Report Type: Spontaneous
  Country: US (occurrence: US)
  Receive Date: 20141022
  Receipt Date: 20141022
  Transmission Date: 20150529
  Serious: Yes (Other)
  Sender: FDA-Public Use
  Company Number: US-TEVA-515907USA

PATIENT
  Age: 47 Year
  Sex: Female

DRUGS (1)
  1. COPAXONE [Suspect]
     Active Substance: GLATIRAMER ACETATE
     Indication: SECONDARY PROGRESSIVE MULTIPLE SCLEROSIS
     Route: 058
     Dates: start: 20140821

REACTIONS (9)
  - Gait disturbance [Recovered/Resolved]
  - Vertigo [Recovering/Resolving]
  - Disorientation [Unknown]
  - Product use issue [Unknown]
  - Scratch [Unknown]
  - Loss of consciousness [Recovered/Resolved]
  - Vision blurred [Unknown]
  - Formication [Unknown]
  - Dizziness [Recovering/Resolving]

NARRATIVE: CASE EVENT DATE: 20140821
